FAERS Safety Report 17121000 (Version 1)
Quarter: 2019Q4

REPORT INFORMATION
  Report Type: Spontaneous
  Country: US (occurrence: US)
  Receive Date: 20191113
  Receipt Date: 20191113
  Transmission Date: 20200122
  Serious: Yes (Hospitalization)
  Sender: FDA-Public Use
  Company Number: None

PATIENT
  Age: 50 Year
  Sex: Female

DRUGS (1)
  1. EMGALITY [Suspect]
     Active Substance: GALCANEZUMAB-GNLM
     Dosage: ?          OTHER FREQUENCY:1X EVERY 28 DAYS;?
     Route: 058
     Dates: start: 20191024, end: 20191112

REACTIONS (2)
  - Epistaxis [None]
  - Headache [None]

NARRATIVE: CASE EVENT DATE: 20191112
